FAERS Safety Report 25006676 (Version 1)
Quarter: 2025Q1

REPORT INFORMATION
  Report Type: Spontaneous
  Country: SI (occurrence: SI)
  Receive Date: 20250225
  Receipt Date: 20250225
  Transmission Date: 20250409
  Serious: Yes (Other)
  Sender: AMGEN
  Company Number: SI-AMGEN-SVNSP2024258039

PATIENT

DRUGS (4)
  1. REPATHA [Suspect]
     Active Substance: EVOLOCUMAB
     Indication: Hypercholesterolaemia
     Dosage: 150 MILLIGRAM, Q2WK
     Route: 065
     Dates: start: 201705
  2. REPATHA [Suspect]
     Active Substance: EVOLOCUMAB
     Dosage: 420 MILLIGRAM, QMO
     Route: 065
     Dates: start: 20240930
  3. PRALUENT [Suspect]
     Active Substance: ALIROCUMAB
     Indication: Hypercholesterolaemia
     Dosage: 75 MILLIGRAM, Q2WK
     Route: 065
     Dates: start: 201705
  4. PRALUENT [Suspect]
     Active Substance: ALIROCUMAB
     Dosage: 150 MILLIGRAM, Q2WK
     Route: 065
     Dates: start: 20240930

REACTIONS (11)
  - Erectile dysfunction [Unknown]
  - Myalgia [Unknown]
  - Arthralgia [Unknown]
  - Fatigue [Unknown]
  - Malaise [Unknown]
  - Eye disorder [Unknown]
  - Insomnia [Unknown]
  - Diarrhoea [Unknown]
  - Influenza like illness [Unknown]
  - Pruritus [Unknown]
  - Off label use [Unknown]

NARRATIVE: CASE EVENT DATE: 20170501
